FAERS Safety Report 7312412-7 (Version None)
Quarter: 2011Q1

REPORT INFORMATION
  Report Type: 
  Country: None (occurrence: None)
  Receive Date: 20110214
  Receipt Date: 20110203
  Transmission Date: 20110831
  Serious: Yes (Hospitalization)
  Sender: FDA-Public Use
  Company Number: 823181

PATIENT
  Age: 41 Year
  Sex: Female

DRUGS (3)
  1. (DAUNOBLASTINA) [Concomitant]
  2. VEPESID [Concomitant]
  3. CYTARABINE [Suspect]
     Indication: ACUTE LEUKAEMIA
     Dosage: 9600 MG MILLIGRAM (S), INTRAVENOUS
     Route: 042
     Dates: start: 20101014, end: 20101020

REACTIONS (1)
  - KERATITIS [None]
